FAERS Safety Report 5990476-0 (Version None)
Quarter: 2008Q4

REPORT INFORMATION
  Report Type: 
  Country: None (occurrence: None)
  Receive Date: 20081211
  Receipt Date: 20081209
  Transmission Date: 20090506
  Serious: Yes (Hospitalization)
  Sender: FDA-Public Use
  Company Number: CA-BRISTOL-MYERS SQUIBB COMPANY-14425391

PATIENT
  Age: 24 Year
  Sex: Male

DRUGS (3)
  1. CISPLATIN [Suspect]
     Indication: TESTIS CANCER
  2. ETOPOSIDE [Suspect]
  3. BLEOMYCIN SULFATE [Suspect]

REACTIONS (2)
  - CORONARY ARTERY DISSECTION [None]
  - MYOCARDIAL INFARCTION [None]
